FAERS Safety Report 4518289-7 (Version None)
Quarter: 2004Q4

REPORT INFORMATION
  Report Type: 
  Country: None (occurrence: None)
  Receive Date: 20041130
  Receipt Date: 20041119
  Transmission Date: 20050328
  Serious: Yes (Hospitalization)
  Sender: FDA-Public Use
  Company Number: US-GDP-0411585

PATIENT
  Age: 27 Year
  Sex: Female
  Weight: 58.0604 kg

DRUGS (1)
  1. DIFFERIN (ADAPALENE) CREAM 0.1% [Suspect]
     Indication: ACNE
     Dosage: 1 APP QD TP
     Route: 061
     Dates: start: 20040927, end: 20041017

REACTIONS (2)
  - EYELID OEDEMA [None]
  - URTICARIA [None]
